FAERS Safety Report 25623747 (Version 3)
Quarter: 2025Q3

REPORT INFORMATION
  Report Type: Report from Study
  Country: US (occurrence: US)
  Receive Date: 20250730
  Receipt Date: 20250929
  Transmission Date: 20251021
  Serious: Yes (Other)
  Sender: NOVARTIS
  Company Number: US-002147023-NVSC2025US058162

PATIENT
  Sex: Female

DRUGS (1)
  1. KESIMPTA [Suspect]
     Active Substance: OFATUMUMAB
     Indication: Multiple sclerosis
     Route: 058
     Dates: start: 20250327

REACTIONS (15)
  - Cataract [Not Recovered/Not Resolved]
  - Muscle spasms [Recovered/Resolved]
  - Gait inability [Recovering/Resolving]
  - Dysstasia [Unknown]
  - Pain in extremity [Unknown]
  - Headache [Unknown]
  - Ophthalmic migraine [Unknown]
  - Visual impairment [Unknown]
  - Feeling abnormal [Unknown]
  - Fall [Unknown]
  - Fatigue [Unknown]
  - Pain [Unknown]
  - Abdominal discomfort [Unknown]
  - Diarrhoea [Unknown]
  - Urinary incontinence [Unknown]
